FAERS Safety Report 6376756-8 (Version None)
Quarter: 2009Q3

REPORT INFORMATION
  Report Type: 
  Country: None (occurrence: None)
  Receive Date: 20090925
  Receipt Date: 20090915
  Transmission Date: 20100115
  Serious: Yes (Hospitalization)
  Sender: FDA-Public Use
  Company Number: US-CELGENEUS-163-21880-09091298

PATIENT
  Sex: Male

DRUGS (2)
  1. REVLIMID [Suspect]
     Indication: MULTIPLE MYELOMA
     Route: 048
     Dates: start: 20090811, end: 20090825
  2. REVLIMID [Suspect]
     Route: 048
     Dates: start: 20090916

REACTIONS (3)
  - CONVULSION [None]
  - HALLUCINATION [None]
  - SPINAL FRACTURE [None]
